FAERS Safety Report 4703656-9 (Version None)
Quarter: 2005Q2

REPORT INFORMATION
  Report Type: 
  Country: None (occurrence: None)
  Receive Date: 20050208
  Receipt Date: 20050208
  Transmission Date: 20051028
  Serious: Yes (Other)
  Sender: FDA-Public Use
  Company Number: None

PATIENT
  Age: 73 Year
  Sex: Female
  Weight: 70.3075 kg

DRUGS (1)
  1. CARDIZEM CD [Suspect]
     Indication: ESSENTIAL HYPERTENSION
     Dosage: 240 MG DAILY   LONGTERM

REACTIONS (1)
  - BLOOD PRESSURE INADEQUATELY CONTROLLED [None]
